FAERS Safety Report 9413284 (Version 1)
Quarter: 2013Q3

REPORT INFORMATION
  Report Type: Spontaneous
  Country: DE (occurrence: None)
  Receive Date: 20130718
  Receipt Date: 20130718
  Transmission Date: 20140515
  Serious: Yes (Death)
  Sender: FDA-Public Use
  Company Number: SYM-2013-06303

PATIENT
  Sex: 0

DRUGS (4)
  1. FLUOROURACIL (FLUOROURACIL) (FLUOROURACIL) [Suspect]
     Indication: ADENOCARCINOMA GASTRIC
  2. OXALIPLATIN (OXALIPLATIN) (OXALIPLATIN) [Suspect]
     Indication: ADENOCARCINOMA GASTRIC
  3. DOCETAXEL [Suspect]
     Indication: ADENOCARCINOMA GASTRIC
  4. FOLINIC ACID [Suspect]
     Indication: ADENOCARCINOMA GASTRIC

REACTIONS (1)
  - Toxicity to various agents [None]
